FAERS Safety Report 6882483-0 (Version None)
Quarter: 2010Q3

REPORT INFORMATION
  Report Type: 
  Country: None (occurrence: None)
  Receive Date: 20100729
  Receipt Date: 20100720
  Transmission Date: 20110219
  Serious: Yes (Hospitalization)
  Sender: FDA-Public Use
  Company Number: US-JNJFOC-20100706889

PATIENT
  Sex: Female
  Weight: 54.43 kg

DRUGS (11)
  1. SANDOZ FENTANYL TRANSDERMAL SYSTEM [Suspect]
     Indication: BACK PAIN
     Route: 062
  2. SANDOZ FENTANYL TRANSDERMAL SYSTEM [Suspect]
     Dosage: NDC#: 0781-7243-55
     Route: 062
  3. NEXIUM [Concomitant]
     Indication: GASTRIC DISORDER
     Route: 048
  4. OXYCODONE HCL AND ACETAMINOPHEN [Concomitant]
     Indication: BREAKTHROUGH PAIN
     Dosage: DOSE: 7.5/500MG
     Route: 048
  5. PLAVIX [Concomitant]
     Indication: ANTICOAGULANT THERAPY
     Route: 048
  6. REQUIP [Concomitant]
     Indication: RESTLESS LEGS SYNDROME
     Route: 048
  7. ASPIRIN [Concomitant]
     Indication: CARDIAC DISORDER
     Route: 048
  8. NITROGLYCERIN [Concomitant]
     Indication: CARDIAC DISORDER
     Route: 060
  9. ADVAIR DISKUS 100/50 [Concomitant]
     Indication: ASTHMA
     Dosage: DOSE: 500/50 MG
     Route: 055
  10. XOPENEX [Concomitant]
     Indication: ASTHMA
     Route: 055
  11. NASONEX [Concomitant]
     Indication: NASAL CONGESTION
     Route: 045

REACTIONS (7)
  - CARDIAC DISORDER [None]
  - CONSTIPATION [None]
  - MYOCARDIAL INFARCTION [None]
  - PRODUCT QUALITY ISSUE [None]
  - SKIN LACERATION [None]
  - SKIN ODOUR ABNORMAL [None]
  - WRONG TECHNIQUE IN DRUG USAGE PROCESS [None]
